FAERS Safety Report 12311605 (Version 1)
Quarter: 2016Q2

REPORT INFORMATION
  Report Type: Spontaneous
  Country: GB (occurrence: GB)
  Receive Date: 20160427
  Receipt Date: 20160427
  Transmission Date: 20160815
  Serious: Yes (Hospitalization)
  Sender: FDA-Public Use
  Company Number: GB-WATSON-2016-08050

PATIENT
  Age: 66 Year
  Sex: Female
  Weight: 53.5 kg

DRUGS (3)
  1. NITROFURANTOIN (WATSON LABORATORIES) [Suspect]
     Active Substance: NITROFURANTOIN
     Indication: KIDNEY INFECTION
     Dosage: 2 DF, QID
     Route: 065
  2. FLUCLOXACILLIN (UNKNOWN) [Suspect]
     Active Substance: FLUCLOXACILLIN
     Indication: PERIPHERAL SWELLING
     Dosage: 4000 MG, DAILY
     Route: 048
     Dates: start: 20160107, end: 20160112
  3. ECHINACEA                          /01323501/ [Concomitant]
     Indication: PRODUCT USED FOR UNKNOWN INDICATION
     Dosage: UNK
     Route: 065

REACTIONS (11)
  - Feeling cold [Unknown]
  - Pruritus [Unknown]
  - Abdominal tenderness [Unknown]
  - Headache [Unknown]
  - Abdominal discomfort [Unknown]
  - Tremor [Unknown]
  - Nausea [Unknown]
  - Sensory disturbance [Unknown]
  - Jaundice cholestatic [Not Recovered/Not Resolved]
  - Chromaturia [Unknown]
  - Eye colour change [Unknown]

NARRATIVE: CASE EVENT DATE: 20160129
